FAERS Safety Report 16673220 (Version 4)
Quarter: 2019Q3

REPORT INFORMATION
  Report Type: Spontaneous
  Country: EG (occurrence: EG)
  Receive Date: 20190806
  Receipt Date: 20190918
  Transmission Date: 20191004
  Serious: Yes (Death, Life-Threatening, Other)
  Sender: FDA-Public Use
  Company Number: PHHY2019EG181836

PATIENT
  Age: 4 Year
  Sex: Male

DRUGS (3)
  1. LIDOCAINE. [Suspect]
     Active Substance: LIDOCAINE
     Indication: PRODUCT USED FOR UNKNOWN INDICATION
     Dosage: UNK
     Route: 065
  2. CEFTRIAXONE. [Suspect]
     Active Substance: CEFTRIAXONE
     Indication: GASTRITIS
     Dosage: UNK (MINIMAL DOSE)
     Route: 058
  3. CEFTRIAXONE. [Suspect]
     Active Substance: CEFTRIAXONE
     Indication: VOMITING

REACTIONS (8)
  - Death [Fatal]
  - Coma [Unknown]
  - Hypersensitivity [Unknown]
  - Rash [Unknown]
  - Chest discomfort [Unknown]
  - Asphyxia [Unknown]
  - Product quality issue [Unknown]
  - Respiratory arrest [Unknown]

NARRATIVE: CASE EVENT DATE: 20190730
